FAERS Safety Report 11947754 (Version 1)
Quarter: 2016Q1

REPORT INFORMATION
  Report Type: Report from Study
  Country: CA (occurrence: CA)
  Receive Date: 20160125
  Receipt Date: 20160125
  Transmission Date: 20160526
  Serious: Yes (Hospitalization)
  Sender: FDA-Public Use
  Company Number: CA-JNJFOC-20160101879

PATIENT
  Age: 18 Year
  Sex: Female
  Weight: 51 kg

DRUGS (1)
  1. REMICADE [Suspect]
     Active Substance: INFLIXIMAB
     Indication: COLITIS ULCERATIVE
     Dosage: AT 0,2 INFUSIONS
     Route: 042
     Dates: start: 20151207

REACTIONS (2)
  - Pyrexia [Unknown]
  - Intestinal resection [Unknown]

NARRATIVE: CASE EVENT DATE: 20160106
